FAERS Safety Report 24043478 (Version 1)
Quarter: 2024Q3

REPORT INFORMATION
  Report Type: Spontaneous
  Country: US (occurrence: US)
  Receive Date: 20240703
  Receipt Date: 20240703
  Transmission Date: 20241016
  Serious: Yes (Life-Threatening, Hospitalization)
  Sender: MACLEODS
  Company Number: US-MLMSERVICE-20240613-PI098388-00217-1

PATIENT

DRUGS (1)
  1. METFORMIN [Suspect]
     Active Substance: METFORMIN HYDROCHLORIDE
     Indication: Product used for unknown indication
     Dosage: INGESTING
     Route: 048

REACTIONS (5)
  - Toxicity to various agents [Unknown]
  - Renal impairment [Unknown]
  - Hypoglycaemia [Unknown]
  - Lactic acidosis [Unknown]
  - Intentional overdose [Unknown]
